FAERS Safety Report 6380915-8 (Version None)
Quarter: 2009Q3

REPORT INFORMATION
  Report Type: 
  Country: None (occurrence: None)
  Receive Date: 20090929
  Receipt Date: 20090924
  Transmission Date: 20100115
  Serious: Yes (Disabling)
  Sender: FDA-Public Use
  Company Number: B0595303A

PATIENT
  Sex: Female

DRUGS (7)
  1. LAMICTAL [Suspect]
     Indication: EPILEPSY
     Dosage: 300MG PER DAY
     Route: 048
     Dates: start: 20040101
  2. ROACCUTAN [Suspect]
     Indication: ACNE
     Route: 048
     Dates: start: 20040601, end: 20050401
  3. ISOTRETINOIN [Suspect]
     Indication: ACNE
     Route: 048
     Dates: start: 20060101
  4. FORTECORTIN [Suspect]
     Route: 065
     Dates: start: 19990101, end: 19990101
  5. FORTECORTIN [Suspect]
     Dosage: 12MG PER DAY
     Route: 065
     Dates: start: 20000201, end: 20000301
  6. ACIDUM FOLICUM [Concomitant]
     Dosage: 1MG PER DAY
     Route: 048
     Dates: start: 20060501
  7. CALCIMAGON [Concomitant]
     Route: 048
     Dates: start: 20090201

REACTIONS (1)
  - OSTEONECROSIS [None]
